FAERS Safety Report 6971957-X (Version None)
Quarter: 2010Q3

REPORT INFORMATION
  Report Type: 
  Country: None (occurrence: None)
  Receive Date: 20100908
  Receipt Date: 20100908
  Transmission Date: 20110219
  Serious: Yes (Other)
  Sender: FDA-Public Use
  Company Number: None

PATIENT
  Age: 45 Year
  Sex: Female

DRUGS (2)
  1. LISINOPRIL [Suspect]
     Indication: DIABETES MELLITUS
     Dosage: 5 YEARS AGO
  2. LISINOPRIL [Suspect]
     Indication: HYPERTENSION
     Dosage: 5 YEARS AGO

REACTIONS (1)
  - COUGH [None]
